FAERS Safety Report 9429581 (Version 1)
Quarter: 2013Q3

REPORT INFORMATION
  Report Type: Spontaneous
  Country: US (occurrence: US)
  Receive Date: 20130730
  Receipt Date: 20130730
  Transmission Date: 20140515
  Serious: No
  Sender: FDA-Public Use
  Company Number: US-BAYER-2013-090503

PATIENT
  Age: 59 Year
  Sex: Male
  Weight: 71.2 kg

DRUGS (3)
  1. CIPRO [Suspect]
     Indication: KIDNEY INFECTION
     Dosage: 500 MG, BID
     Route: 048
     Dates: start: 20130601, end: 20130710
  2. CIPRO [Interacting]
     Indication: ANTI-INFECTIVE THERAPY
  3. INVOKANA [Interacting]
     Indication: TYPE 2 DIABETES MELLITUS
     Dosage: 300 MG, UNK
     Route: 048

REACTIONS (2)
  - Hypoglycaemia [Recovered/Resolved]
  - Drug interaction [None]
